FAERS Safety Report 7767350-2 (Version None)
Quarter: 2011Q3

REPORT INFORMATION
  Report Type: 
  Country: None (occurrence: None)
  Receive Date: 20110922
  Receipt Date: 20110916
  Transmission Date: 20111222
  Serious: Yes (Life-Threatening)
  Sender: FDA-Public Use
  Company Number: US-CELGENEUS-163-21880-11092200

PATIENT
  Sex: Male

DRUGS (9)
  1. COUMADIN [Concomitant]
     Route: 065
  2. PROTONIX [Concomitant]
     Route: 065
  3. SEROQUEL [Concomitant]
     Route: 065
  4. MULTI-VITAMINS [Concomitant]
     Route: 065
  5. SENOKOT [Concomitant]
     Route: 065
  6. FERROUS SULFATE TAB [Concomitant]
     Route: 065
  7. REVLIMID [Suspect]
     Dosage: 25 MILLIGRAM
     Route: 048
     Dates: start: 20070610
  8. LIDODERM [Concomitant]
     Route: 065
  9. MIRALAX [Concomitant]
     Route: 065

REACTIONS (1)
  - MULTIPLE MYELOMA [None]
